FAERS Safety Report 19194606 (Version 2)
Quarter: 2021Q2

REPORT INFORMATION
  Report Type: Spontaneous
  Country: US (occurrence: US)
  Receive Date: 20210429
  Receipt Date: 20210624
  Transmission Date: 20210717
  Serious: No
  Sender: FDA-Public Use
  Company Number: US-ASTRAZENECA-2021A330852

PATIENT
  Sex: Male

DRUGS (3)
  1. MOTRIN [Concomitant]
     Active Substance: IBUPROFEN
  2. IMFINZI [Suspect]
     Active Substance: DURVALUMAB
     Indication: IMMUNE SYSTEM DISORDER
     Dosage: DOSE UNKNOWN
     Route: 042
     Dates: start: 202006
  3. IMFINZI [Suspect]
     Active Substance: DURVALUMAB
     Indication: NON-SMALL CELL LUNG CANCER
     Dosage: DOSE UNKNOWN
     Route: 042
     Dates: start: 202006

REACTIONS (3)
  - Joint swelling [Recovered/Resolved]
  - Arthritis [Not Recovered/Not Resolved]
  - Peripheral swelling [Recovered/Resolved]
